FAERS Safety Report 7519570-X (Version None)
Quarter: 2011Q2

REPORT INFORMATION
  Report Type: 
  Country: None (occurrence: None)
  Receive Date: 20110524
  Receipt Date: 20110509
  Transmission Date: 20111010
  Serious: Yes (Other)
  Sender: FDA-Public Use
  Company Number: AUR-APL-2011-01614

PATIENT
  Sex: Female
  Weight: 3.2 kg

DRUGS (1)
  1. FLUOXETINE [Suspect]
     Indication: DEPRESSION
     Dosage: 20MG-QD-TRANSPLACENTAL
     Route: 064

REACTIONS (7)
  - BODY TEMPERATURE INCREASED [None]
  - VOMITING NEONATAL [None]
  - FEEDING DISORDER NEONATAL [None]
  - SNEEZING [None]
  - MATERNAL DRUGS AFFECTING FOETUS [None]
  - AGITATION NEONATAL [None]
  - HYPERTONIA NEONATAL [None]
